FAERS Safety Report 13593368 (Version 2)
Quarter: 2017Q3

REPORT INFORMATION
  Report Type: Spontaneous
  Country: US (occurrence: US)
  Receive Date: 20170530
  Receipt Date: 20170703
  Transmission Date: 20171127
  Serious: Yes (Other)
  Sender: FDA-Public Use
  Company Number: US-SMITH AND NEPHEW, INC-2017SMT00361

PATIENT
  Sex: Male

DRUGS (1)
  1. REGRANEX [Suspect]
     Active Substance: BECAPLERMIN
     Indication: WOUND
     Dosage: UNK
     Route: 061
     Dates: end: 201704

REACTIONS (2)
  - Osteomyelitis [Unknown]
  - Off label use [Recovered/Resolved]
